FAERS Safety Report 20346324 (Version 1)
Quarter: 2022Q1

REPORT INFORMATION
  Report Type: Spontaneous
  Country: US (occurrence: None)
  Receive Date: 20220117
  Receipt Date: 20220117
  Transmission Date: 20220423
  Serious: Yes (Hospitalization)
  Sender: FDA-Public Use
  Company Number: None

PATIENT
  Sex: Female

DRUGS (1)
  1. TOBRAMYCIN [Suspect]
     Active Substance: TOBRAMYCIN
     Indication: Bronchiectasis
     Dosage: 300 MG/5ML  INHALATION?INHALE 5 ML (300 MG TOTAL) VIA NEBULIZER TWICE DAILY FOR 28 DAYS ON, 28 DAYS
     Route: 055
     Dates: start: 20210323

REACTIONS (1)
  - Blood potassium abnormal [None]
